FAERS Safety Report 8474484-6 (Version None)
Quarter: 2012Q2

REPORT INFORMATION
  Report Type: 
  Country: None (occurrence: None)
  Receive Date: 20120628
  Receipt Date: 20120621
  Transmission Date: 20120825
  Serious: Yes (Hospitalization)
  Sender: FDA-Public Use
  Company Number: US-BAYER-2011-050046

PATIENT
  Age: 30 Year
  Sex: Female
  Weight: 50 kg

DRUGS (9)
  1. YAZ [Suspect]
     Indication: PREMENSTRUAL SYNDROME
     Dosage: UNK
     Dates: start: 20071230, end: 20080123
  2. YASMIN [Suspect]
     Indication: MENSTRUATION IRREGULAR
     Dosage: UNK
     Dates: start: 20041101, end: 20050301
  3. DIAZEPAM [Concomitant]
     Indication: ANXIETY
     Dosage: 10 MG, BID
     Route: 048
     Dates: start: 20061201, end: 20091001
  4. YASMIN [Suspect]
     Indication: CONTRACEPTION
     Dosage: UNK
     Dates: start: 20031227
  5. YASMIN [Suspect]
     Indication: PELVIC PAIN
  6. SUBUTEX [Concomitant]
     Indication: AFFECTIVE DISORDER
  7. YAZ [Suspect]
     Indication: CONTRACEPTION
  8. YASMIN [Suspect]
     Indication: PREMENSTRUAL SYNDROME
     Dosage: UNK
     Dates: start: 20020604, end: 20030501
  9. SUBUTEX [Concomitant]
     Indication: DEPRESSION
     Dosage: 8 MG, BID
     Route: 048
     Dates: start: 20061201, end: 20091001

REACTIONS (12)
  - INJURY [None]
  - HEADACHE [None]
  - ANXIETY [None]
  - UNEVALUABLE EVENT [None]
  - PARANOIA [None]
  - CEREBRAL INFARCTION [None]
  - SLOW RESPONSE TO STIMULI [None]
  - PHOTOPSIA [None]
  - PHOTOPHOBIA [None]
  - EMOTIONAL DISTRESS [None]
  - MEMORY IMPAIRMENT [None]
  - CONFUSIONAL STATE [None]
